FAERS Safety Report 4684335-3 (Version None)
Quarter: 2005Q2

REPORT INFORMATION
  Report Type: 
  Country: None (occurrence: None)
  Receive Date: 20050607
  Receipt Date: 20050310
  Transmission Date: 20051028
  Serious: Yes (Other)
  Sender: FDA-Public Use
  Company Number: 2005AP01620

PATIENT
  Age: 76 Year
  Sex: Female

DRUGS (9)
  1. MEROPEN [Suspect]
     Indication: PNEUMONIA
     Route: 041
     Dates: start: 20041112, end: 20041117
  2. MEROPEN [Interacting]
     Route: 041
     Dates: start: 20041118, end: 20041125
  3. WARFARIN [Interacting]
     Indication: CARDIAC FAILURE
     Route: 048
     Dates: end: 20041122
  4. LASIX [Concomitant]
     Indication: CARDIAC FAILURE
     Dosage: FOUR TIMES A WEEK
     Route: 042
     Dates: start: 20041106
  5. LASIX [Concomitant]
     Dosage: FOUR TIMES A WEEK
     Route: 048
  6. GASTER [Concomitant]
     Indication: GASTRITIS
     Route: 042
     Dates: start: 20041114
  7. ACECOL [Concomitant]
     Indication: CARDIAC FAILURE
     Route: 048
  8. FLUITRAN [Concomitant]
     Indication: CARDIAC FAILURE
     Route: 048
  9. ALDACTONE [Concomitant]
     Indication: CARDIAC FAILURE
     Route: 048

REACTIONS (4)
  - EPISTAXIS [None]
  - INTERNATIONAL NORMALISED RATIO INCREASED [None]
  - PROTHROMBIN TIME PROLONGED [None]
  - VITAMIN K DEFICIENCY [None]
